FAERS Safety Report 20448157 (Version 1)
Quarter: 2022Q1

REPORT INFORMATION
  Report Type: Other
  Country: None (occurrence: ES)
  Receive Date: 20220209
  Receipt Date: 20220209
  Transmission Date: 20220424
  Serious: Yes (Hospitalization)
  Sender: FDA-Public Use
  Company Number: ES-BIOLOGICAL E. LTD-2124746

PATIENT
  Age: 19 Year
  Sex: Male

DRUGS (1)
  1. HEPARIN [Suspect]
     Active Substance: HEPARIN SODIUM
     Indication: Transverse sinus thrombosis
     Route: 065

REACTIONS (1)
  - Drug resistance [Recovered/Resolved]
